FAERS Safety Report 8923519 (Version 2)
Quarter: 2016Q3

REPORT INFORMATION
  Report Type: Spontaneous
  Country: IE (occurrence: IE)
  Receive Date: 20121123
  Receipt Date: 20160921
  Transmission Date: 20161109
  Serious: Yes (Other)
  Sender: FDA-Public Use
  Company Number: IE-PFIZER INC-2012290578

PATIENT
  Sex: Male

DRUGS (4)
  1. DEXAMETHASONE. [Concomitant]
     Active Substance: DEXAMETHASONE
     Dosage: 8 MG, DAILY
  2. DEXAMETHASONE. [Concomitant]
     Active Substance: DEXAMETHASONE
     Dosage: 2 MG, DAILY
  3. SUTENT [Suspect]
     Active Substance: SUNITINIB MALATE
     Indication: RENAL CANCER METASTATIC
     Dosage: 50 MG, CYCLIC (ON 4/2 SCHEDULE)
     Dates: start: 20120910
  4. SUTENT [Suspect]
     Active Substance: SUNITINIB MALATE
     Dosage: 37.5 MG, CYCLIC (1X/DAY,4 WEEKS ON 2 WEEKS OFF )
     Dates: end: 20130125

REACTIONS (13)
  - Hypertension [Unknown]
  - Influenza [Unknown]
  - Sepsis [Unknown]
  - Proteinuria [Unknown]
  - Fatigue [Unknown]
  - Excoriation [Recovering/Resolving]
  - Disease progression [Unknown]
  - Tumour pain [Unknown]
  - Oral pain [Unknown]
  - Renal cancer metastatic [Unknown]
  - Dyspnoea [Unknown]
  - Anaemia [Unknown]
  - Haemorrhoidal haemorrhage [Unknown]
